FAERS Safety Report 10687359 (Version 40)
Quarter: 2024Q4

REPORT INFORMATION
  Report Type: Report from Study
  Country: CA (occurrence: CA)
  Receive Date: 20150102
  Receipt Date: 20241210
  Transmission Date: 20250114
  Serious: Yes (Hospitalization, Other)
  Sender: NOVARTIS
  Company Number: PHHY2013CA130024

PATIENT
  Age: 55 Year
  Sex: Female

DRUGS (21)
  1. SANDOSTATIN LAR DEPOT [Suspect]
     Active Substance: OCTREOTIDE ACETATE
     Indication: Acromegaly
     Dosage: 20 MG, Q4W
     Route: 030
     Dates: start: 20050609, end: 20220620
  2. SANDOSTATIN LAR DEPOT [Suspect]
     Active Substance: OCTREOTIDE ACETATE
     Dosage: 30 MG, Q2W
     Route: 030
     Dates: start: 20140429
  3. SANDOSTATIN LAR DEPOT [Suspect]
     Active Substance: OCTREOTIDE ACETATE
     Dosage: 20 MG, QMO (EVERY 4 WEEKS)
     Route: 030
     Dates: start: 20160502
  4. SANDOSTATIN LAR DEPOT [Suspect]
     Active Substance: OCTREOTIDE ACETATE
     Dosage: 20 MG, Q4W
     Route: 030
     Dates: start: 20220907
  5. SANDOSTATIN LAR DEPOT [Suspect]
     Active Substance: OCTREOTIDE ACETATE
     Dosage: 20 MG, Q4W
     Route: 030
     Dates: start: 20240327
  6. LORAZEPAM [Suspect]
     Active Substance: LORAZEPAM
     Indication: Product used for unknown indication
     Dosage: UNK, TID
     Route: 065
  7. RAMIPRIL [Suspect]
     Active Substance: RAMIPRIL
     Indication: Product used for unknown indication
     Dosage: 10 MG, QD
     Route: 065
  8. ATENOLOL [Suspect]
     Active Substance: ATENOLOL
     Indication: Product used for unknown indication
     Dosage: 100 MG, QD
     Route: 065
  9. FUROSEMIDE [Suspect]
     Active Substance: FUROSEMIDE
     Indication: Diuretic therapy
     Dosage: 20 MG, QD FOR 1 MONTH
     Route: 048
     Dates: start: 20181015, end: 20181114
  10. INDAPAMIDE [Suspect]
     Active Substance: INDAPAMIDE
     Indication: Product used for unknown indication
     Dosage: 2.5 MG, QD
     Route: 065
  11. TYLENOL WITH CODEINE [Concomitant]
     Active Substance: ACETAMINOPHEN\CODEINE PHOSPHATE
     Indication: Product used for unknown indication
     Dosage: UNK, PRN
     Route: 065
  12. PREDNISONE [Concomitant]
     Active Substance: PREDNISONE
     Indication: Product used for unknown indication
     Dosage: UNK, QD
     Route: 065
  13. LEVOTHYROXINE [Concomitant]
     Active Substance: LEVOTHYROXINE
     Indication: Product used for unknown indication
     Dosage: UNK, QD
     Route: 065
  14. NITROFURANTOIN [Concomitant]
     Active Substance: NITROFURANTOIN
     Indication: Product used for unknown indication
     Dosage: UNK, QD
     Route: 065
  15. LIPITOR [Concomitant]
     Active Substance: ATORVASTATIN CALCIUM
     Indication: Product used for unknown indication
     Dosage: UNK, QD
     Route: 065
  16. TEMAZEPAM [Concomitant]
     Active Substance: TEMAZEPAM
     Indication: Product used for unknown indication
     Dosage: UNK
     Route: 065
  17. SOMAVERT [Concomitant]
     Active Substance: PEGVISOMANT
     Indication: Product used for unknown indication
     Dosage: UNK
     Route: 065
  18. XARELTO [Concomitant]
     Active Substance: RIVAROXABAN
     Indication: Anticoagulant therapy
     Dosage: 1 DOSAGE FORM, QD
     Route: 048
     Dates: start: 201811
  19. FLECAINIDE [Concomitant]
     Active Substance: FLECAINIDE
     Indication: Arrhythmia
     Dosage: UNK, BID
     Route: 048
     Dates: start: 2018
  20. ASPIRIN [Concomitant]
     Active Substance: ASPIRIN
     Indication: Product used for unknown indication
     Dosage: UNK, QD
     Route: 048
  21. GLYCOPYRROLATE [Concomitant]
     Active Substance: GLYCOPYRROLATE
     Indication: Product used for unknown indication
     Dosage: UNK
     Route: 055

REACTIONS (81)
  - Pneumonia [Unknown]
  - Pyrexia [Recovering/Resolving]
  - Cough [Not Recovered/Not Resolved]
  - Dyspnoea [Recovering/Resolving]
  - Blood pressure increased [Unknown]
  - Dizziness [Unknown]
  - Helicobacter infection [Unknown]
  - Duodenal ulcer [Unknown]
  - Polyp [Unknown]
  - Postoperative wound infection [Recovered/Resolved]
  - Intestinal haemorrhage [Unknown]
  - Diabetes mellitus [Unknown]
  - Rectal polyp [Unknown]
  - Proctalgia [Unknown]
  - Lung neoplasm malignant [Unknown]
  - Cardiac failure [Unknown]
  - Peripheral swelling [Unknown]
  - Atrial fibrillation [Unknown]
  - Haemorrhage [Unknown]
  - Urinary tract infection [Unknown]
  - Arthritis [Unknown]
  - Exostosis [Unknown]
  - Limb discomfort [Unknown]
  - Pain [Recovered/Resolved]
  - Musculoskeletal discomfort [Unknown]
  - Arthralgia [Unknown]
  - Joint swelling [Unknown]
  - Frustration tolerance decreased [Unknown]
  - Peripheral coldness [Unknown]
  - Weight decreased [Unknown]
  - Contusion [Unknown]
  - Illness [Recovered/Resolved]
  - Full blood count decreased [Unknown]
  - Urinary incontinence [Unknown]
  - Furuncle [Unknown]
  - Dysuria [Unknown]
  - Underdose [Unknown]
  - Hyperhidrosis [Unknown]
  - Bone pain [Unknown]
  - Gait disturbance [Unknown]
  - Back pain [Unknown]
  - Pain in extremity [Unknown]
  - Bladder disorder [Unknown]
  - Heart rate decreased [Unknown]
  - Blood pressure systolic increased [Unknown]
  - Bone disorder [Unknown]
  - Haemoglobin decreased [Unknown]
  - Feeling abnormal [Unknown]
  - Hypoaesthesia [Unknown]
  - Stress [Unknown]
  - Mass [Recovering/Resolving]
  - Pain [Unknown]
  - Urine abnormality [Unknown]
  - Muscular weakness [Unknown]
  - Sensitisation [Unknown]
  - Urine odour abnormal [Unknown]
  - Gallbladder disorder [Unknown]
  - COVID-19 [Recovered/Resolved]
  - Feeling cold [Recovered/Resolved]
  - Asthenia [Recovered/Resolved]
  - Fatigue [Recovered/Resolved]
  - Nausea [Unknown]
  - Eating disorder [Recovered/Resolved]
  - Malaise [Unknown]
  - Dehydration [Unknown]
  - Headache [Recovered/Resolved]
  - Change of bowel habit [Unknown]
  - Abdominal pain upper [Unknown]
  - Jaundice [Not Recovered/Not Resolved]
  - Abdominal discomfort [Unknown]
  - Thyroid disorder [Unknown]
  - Blood glucose decreased [Unknown]
  - Decreased appetite [Unknown]
  - Dizziness [Recovered/Resolved]
  - Diarrhoea [Unknown]
  - Injection site discomfort [Unknown]
  - Injection site bruising [Unknown]
  - Injection site pain [Unknown]
  - Injection site mass [Unknown]
  - Needle issue [Unknown]
  - Product use issue [Unknown]

NARRATIVE: CASE EVENT DATE: 20050609
